FAERS Safety Report 5335661-6 (Version None)
Quarter: 2007Q2

REPORT INFORMATION
  Report Type: 
  Country: None (occurrence: None)
  Receive Date: 20070322
  Receipt Date: 20061214
  Transmission Date: 20071010
  Serious: No
  Sender: FDA-Public Use
  Company Number: 2006US002912

PATIENT
  Age: 80 Year
  Sex: Female

DRUGS (5)
  1. VESLCARE (SOLIFENACIN) TABLET, 5MG [Suspect]
     Indication: HYPERTONIC BLADDER
     Dosage: 5 MG, ORAL
     Route: 048
     Dates: start: 20060904
  2. LEVOTHYROXINE SODIUM [Concomitant]
  3. NEXIUM [Concomitant]
  4. ASPIRN [Concomitant]
  5. MULTIVITAMINS (ERGOCALCIFEROL, FOLIC ACID, NICOTINAMIDE, PANTHENOL, TH [Concomitant]

REACTIONS (3)
  - DRY MOUTH [None]
  - POLLAKIURIA [None]
  - URINE OUTPUT INCREASED [None]
